APPROVED DRUG PRODUCT: UROCIT-K
Active Ingredient: POTASSIUM CITRATE
Strength: 15MEQ
Dosage Form/Route: TABLET, EXTENDED RELEASE;ORAL
Application: N019071 | Product #003 | TE Code: AB
Applicant: MISSION PHARMACAL CO
Approved: Dec 30, 2009 | RLD: Yes | RS: Yes | Type: RX